FAERS Safety Report 9139598 (Version 2)
Quarter: 2013Q1

REPORT INFORMATION
  Report Type: Report from Study
  Country: DE (occurrence: DE)
  Receive Date: 20130305
  Receipt Date: 20130306
  Transmission Date: 20140127
  Serious: Yes (Death, Hospitalization)
  Sender: FDA-Public Use
  Company Number: PHHO2012DE016100

PATIENT
  Age: 80 Year
  Sex: Female
  Weight: 76 kg

DRUGS (6)
  1. EXEMESTANE [Suspect]
     Indication: BREAST CANCER METASTATIC
     Dosage: 25 MG, QD
     Route: 048
     Dates: start: 20121010, end: 20121018
  2. EVEROLIMUS [Suspect]
     Indication: BREAST CANCER METASTATIC
     Dosage: 10 MG, QD
     Route: 048
     Dates: start: 20121010, end: 20121018
  3. INSULIN HUMALOG [Concomitant]
     Indication: DIABETES MELLITUS
     Dosage: 30 IE, QD/ 35 IE, QD
     Route: 058
  4. KARVEZIDE [Concomitant]
     Indication: HYPERTENSION
     Dosage: 150/25G, 75/6.25MG
     Route: 048
  5. VENOSTASIN [Concomitant]
     Indication: VARICOSE VEIN
     Dosage: 175 MG, QD
     Route: 048
     Dates: start: 20120920
  6. PANTOPRAZOL [Concomitant]
     Indication: PROPHYLAXIS
     Dosage: 20 MG, QD
     Route: 048
     Dates: start: 20121010

REACTIONS (2)
  - Death [Fatal]
  - Intestinal obstruction [Recovered/Resolved with Sequelae]
